FAERS Safety Report 5148959-1 (Version None)
Quarter: 2006Q4

REPORT INFORMATION
  Report Type: 
  Country: None (occurrence: None)
  Receive Date: 20061113
  Receipt Date: 20060904
  Transmission Date: 20070319
  Serious: Yes (Other)
  Sender: FDA-Public Use
  Company Number: DE-BRISTOL-MYERS SQUIBB COMPANY-13497342

PATIENT
  Age: 64 Year
  Sex: Female
  Weight: 62 kg

DRUGS (4)
  1. LITALIR CAPS [Suspect]
     Indication: CHRONIC MYELOID LEUKAEMIA
     Dates: start: 20060126
  2. TRAMADOL HCL [Concomitant]
  3. TORSEMIDE [Concomitant]
  4. ACIMETHIN [Concomitant]

REACTIONS (2)
  - HAEMATOMA [None]
  - URTICARIA [None]
